FAERS Safety Report 8096938-7 (Version None)
Quarter: 2012Q1

REPORT INFORMATION
  Report Type: 
  Country: None (occurrence: None)
  Receive Date: 20120129
  Receipt Date: 20111114
  Transmission Date: 20120608
  Serious: No
  Sender: FDA-Public Use
  Company Number: US-ABBOTT-11P-163-0874573-00

PATIENT
  Sex: Female
  Weight: 70.37 kg

DRUGS (7)
  1. ZOLOFT [Concomitant]
     Indication: DEPRESSION
  2. METHOTREXATE [Concomitant]
     Indication: RHEUMATOID ARTHRITIS
  3. FOLIC ACID [Concomitant]
     Indication: VITAMIN SUPPLEMENTATION
  4. HUMIRA [Suspect]
     Indication: RHEUMATOID ARTHRITIS
     Dates: start: 20110801
  5. FISH OIL [Concomitant]
     Indication: SUPPLEMENTATION THERAPY
  6. ZANTAC [Concomitant]
     Indication: GASTRIC DISORDER
  7. PREDNISONE TAB [Concomitant]
     Indication: RHEUMATOID ARTHRITIS

REACTIONS (9)
  - SPUTUM PURULENT [None]
  - IMPAIRED HEALING [None]
  - ARTHRALGIA [None]
  - OPEN WOUND [None]
  - PRURITUS [None]
  - SINUSITIS [None]
  - KIDNEY INFECTION [None]
  - COUGH [None]
  - SKIN WARM [None]
